FAERS Safety Report 4934102-8 (Version None)
Quarter: 2006Q1

REPORT INFORMATION
  Report Type: 
  Country: None (occurrence: None)
  Receive Date: 20060307
  Receipt Date: 20060307
  Transmission Date: 20060701
  Serious: Yes (Life-Threatening, Hospitalization, Disabling)
  Sender: FDA-Public Use
  Company Number: None

PATIENT
  Age: 23 Year
  Sex: Female
  Weight: 58.9676 kg

DRUGS (1)
  1. MIFEPREX [Suspect]
     Dosage: PHASE 1,  PO;   PHASE 2,  VAG
     Route: 048

REACTIONS (5)
  - ABDOMINAL PAIN [None]
  - ABORTION INCOMPLETE [None]
  - PYREXIA [None]
  - UTERINE INFECTION [None]
  - VAGINAL HAEMORRHAGE [None]
